FAERS Safety Report 8981647 (Version 2)
Quarter: 2012Q4

REPORT INFORMATION
  Report Type: Report from Study
  Country: DE (occurrence: IT)
  Receive Date: 20121223
  Receipt Date: 20121228
  Transmission Date: 20130627
  Serious: Yes (Hospitalization)
  Sender: FDA-Public Use
  Company Number: IT-BRISTOL-MYERS SQUIBB COMPANY-17223314

PATIENT

DRUGS (3)
  1. CETUXIMAB [Suspect]
     Indication: CERVIX CARCINOMA
     Dosage: Most recent dose on : 22Nov12
     Dates: start: 20120726
  2. CARBOPLATIN [Suspect]
     Indication: CERVIX CARCINOMA
     Dosage: Most recent dose on: 22Nov12
     Dates: start: 20120726
  3. PACLITAXEL [Suspect]
     Indication: CERVIX CARCINOMA
     Dosage: Most recent dose on 22Nov12
     Dates: start: 20120726

REACTIONS (3)
  - Anaemia [Recovered/Resolved]
  - Thrombocytopenia [Recovered/Resolved]
  - Neutropenia [Recovered/Resolved]
